FAERS Safety Report 24602793 (Version 2)
Quarter: 2024Q4

REPORT INFORMATION
  Report Type: Report from Study
  Country: US (occurrence: US)
  Receive Date: 20241111
  Receipt Date: 20241128
  Transmission Date: 20250115
  Serious: Yes (Hospitalization, Other)
  Sender: LEO PHARM
  Company Number: US-LEO Pharma-374838

PATIENT
  Age: 71 Year
  Sex: Male

DRUGS (1)
  1. ADBRY [Suspect]
     Active Substance: TRALOKINUMAB-LDRM
     Indication: Dermatitis atopic
     Dates: start: 20240730

REACTIONS (3)
  - Blood pressure increased [Recovered/Resolved]
  - Consciousness fluctuating [Recovered/Resolved]
  - Dyspnoea [Recovered/Resolved]
